FAERS Safety Report 18236012 (Version 1)
Quarter: 2020Q3

REPORT INFORMATION
  Report Type: Report from Study
  Country: JP (occurrence: JP)
  Receive Date: 20200905
  Receipt Date: 20200905
  Transmission Date: 20201103
  Serious: Yes (Other)
  Sender: FDA-Public Use
  Company Number: JP-CELLTRION INC.-2020JP026467

PATIENT

DRUGS (2)
  1. CT?P13 [Suspect]
     Active Substance: INFLIXIMAB-DYYB
     Indication: CROHN^S DISEASE
     Dosage: 295 MG: WEIGHT WAS 59.0 KG
     Route: 041
     Dates: start: 20181217, end: 20181217
  2. CT?P13 [Suspect]
     Active Substance: INFLIXIMAB-DYYB
     Dosage: 320 MG: WEIGHT WAS 64.0 KG
     Route: 041
     Dates: start: 20191211, end: 20191211

REACTIONS (6)
  - Genital haemorrhage [Unknown]
  - Pharyngotonsillitis [Recovered/Resolved]
  - Cough variant asthma [Unknown]
  - Off label use [Unknown]
  - Incorrect drug administration rate [Unknown]
  - Product use issue [Unknown]

NARRATIVE: CASE EVENT DATE: 20191016
